FAERS Safety Report 17474348 (Version 1)
Quarter: 2020Q1

REPORT INFORMATION
  Report Type: Report from Study
  Country: GB (occurrence: GB)
  Receive Date: 20200228
  Receipt Date: 20200228
  Transmission Date: 20200409
  Serious: Yes (Hospitalization, Other)
  Sender: FDA-Public Use
  Company Number: GB-JNJFOC-20190724814

PATIENT
  Age: 65 Year
  Sex: Female

DRUGS (14)
  1. TOUJEO [Concomitant]
     Active Substance: INSULIN GLARGINE
  2. ADCAL D3 [Concomitant]
     Active Substance: CALCIUM CARBONATE\CHOLECALCIFEROL
  3. METFORMIN [Concomitant]
     Active Substance: METFORMIN HYDROCHLORIDE
  4. BRALTUS [Concomitant]
     Active Substance: TIOTROPIUM BROMIDE
  5. WARFARIN [Concomitant]
     Active Substance: WARFARIN
  6. CARBOCISTEINE [Concomitant]
     Active Substance: CARBOCYSTEINE
  7. ALENDRONIC ACID [Concomitant]
     Active Substance: ALENDRONIC ACID
  8. TRAMADOL. [Concomitant]
     Active Substance: TRAMADOL
  9. LUMIGAN [Concomitant]
     Active Substance: BIMATOPROST
  10. HUMALOG [Concomitant]
     Active Substance: INSULIN LISPRO
  11. PARACETAMOL [Concomitant]
     Active Substance: ACETAMINOPHEN
  12. STELARA [Suspect]
     Active Substance: USTEKINUMAB
     Indication: PSORIASIS
     Dosage: ON WEEK O AS DIRECTED.
     Route: 058
     Dates: start: 2013
  13. INSULIN [Concomitant]
     Active Substance: INSULIN NOS
  14. DOUBLEBASE [Concomitant]
     Active Substance: ISOPROPYL MYRISTATE\PARAFFIN

REACTIONS (3)
  - Psoriasis [Not Recovered/Not Resolved]
  - Lower respiratory tract infection [Unknown]
  - Product dose omission [Unknown]

NARRATIVE: CASE EVENT DATE: 201811
